FAERS Safety Report 7270322-8 (Version None)
Quarter: 2011Q1

REPORT INFORMATION
  Report Type: 
  Country: None (occurrence: None)
  Receive Date: 20110202
  Receipt Date: 20101217
  Transmission Date: 20110831
  Serious: Yes (Other)
  Sender: FDA-Public Use
  Company Number: US-BAYER-201017767NA

PATIENT
  Sex: Female
  Weight: 70.748 kg

DRUGS (2)
  1. ZEGERID [Concomitant]
     Dosage: 40 MG, UNK
  2. YAZ [Suspect]
     Indication: PRODUCT USED FOR UNKNOWN INDICATION
     Route: 048
     Dates: start: 20070101

REACTIONS (2)
  - PORTAL VEIN THROMBOSIS [None]
  - ILEITIS [None]
